FAERS Safety Report 5592356-1 (Version None)
Quarter: 2008Q1

REPORT INFORMATION
  Report Type: 
  Country: None (occurrence: None)
  Receive Date: 20080115
  Receipt Date: 20080103
  Transmission Date: 20080703
  Serious: Yes (Hospitalization)
  Sender: FDA-Public Use
  Company Number: IL-PFIZER INC-2008002222

PATIENT
  Age: 53 Year

DRUGS (1)
  1. ZIPRASIDONE (CAPS) [Suspect]
     Dosage: DAILY DOSE:80MG

REACTIONS (2)
  - DEPRESSION [None]
  - SUICIDAL IDEATION [None]
